FAERS Safety Report 8434310-8 (Version None)
Quarter: 2012Q2

REPORT INFORMATION
  Report Type: 
  Country: None (occurrence: None)
  Receive Date: 20120613
  Receipt Date: 20120605
  Transmission Date: 20120825
  Serious: Yes (Other)
  Sender: FDA-Public Use
  Company Number: US-FRI-1000025991

PATIENT
  Sex: Male
  Weight: 81.65 kg

DRUGS (6)
  1. AMBIEN [Suspect]
     Dates: end: 20110501
  2. LEXAPRO [Suspect]
     Dates: end: 20110501
  3. ZYPREXA [Suspect]
     Dates: end: 20110501
  4. WELLBUTRIN [Suspect]
     Dosage: 600 MG
     Dates: end: 20110501
  5. ADDERALL 5 [Suspect]
     Dates: end: 20110501
  6. EFFEXOR [Suspect]
     Dates: end: 20110501

REACTIONS (2)
  - DEPRESSION SUICIDAL [None]
  - STRESS [None]
